FAERS Safety Report 5603212-4 (Version None)
Quarter: 2008Q1

REPORT INFORMATION
  Report Type: 
  Country: None (occurrence: None)
  Receive Date: 20080123
  Receipt Date: 20080110
  Transmission Date: 20080703
  Serious: Yes (Other)
  Sender: FDA-Public Use
  Company Number: 2008001363

PATIENT
  Sex: Female

DRUGS (1)
  1. LISTERINE ELECTRIC TOOTHPASTE (MENTHOL, METHYL SALICYLATE, SODIUM MONO [Suspect]
     Dosage: ORAL
     Route: 048

REACTIONS (2)
  - BLISTER [None]
  - THERMAL BURN [None]
